FAERS Safety Report 7709965-3 (Version None)
Quarter: 2011Q3

REPORT INFORMATION
  Report Type: 
  Country: None (occurrence: None)
  Receive Date: 20110825
  Receipt Date: 20110819
  Transmission Date: 20111222
  Serious: Yes (Other)
  Sender: FDA-Public Use
  Company Number: RU-PFIZER INC-2011160593

PATIENT
  Sex: Female

DRUGS (3)
  1. XALATAN [Suspect]
     Indication: GLAUCOMA
     Dosage: 1 GTT, 1X/DAY PER NIGHT INTO EACH EYE
     Route: 047
     Dates: start: 20070101
  2. BETOPTIC [Suspect]
     Indication: GLAUCOMA
     Dosage: 1 GTT, 2X/DAY IN THE MORNING AND IN THE EVENING BY 1 DROP INTO EACH EYE
     Route: 047
     Dates: start: 20070101
  3. AZOPT [Concomitant]
     Indication: GLAUCOMA
     Dosage: 1 GTT INTO EACH EYE
     Route: 047
     Dates: start: 20100101

REACTIONS (2)
  - INTRAOCULAR PRESSURE INCREASED [None]
  - EYE PAIN [None]
